FAERS Safety Report 17814689 (Version 1)
Quarter: 2020Q2

REPORT INFORMATION
  Report Type: Spontaneous
  Country: US (occurrence: US)
  Receive Date: 20200522
  Receipt Date: 20200522
  Transmission Date: 20200714
  Serious: No
  Sender: FDA-Public Use
  Company Number: US-ACCORD-176460

PATIENT
  Age: 73 Year
  Sex: Male

DRUGS (1)
  1. TACROLIMUS ACCORD [Suspect]
     Active Substance: TACROLIMUS
     Indication: PRODUCT USED FOR UNKNOWN INDICATION
     Dosage: STRENGTH: 0.1%

REACTIONS (1)
  - Condition aggravated [Unknown]
